FAERS Safety Report 5368137-0 (Version None)
Quarter: 2007Q2

REPORT INFORMATION
  Report Type: 
  Country: None (occurrence: None)
  Receive Date: 20070620
  Receipt Date: 20070605
  Transmission Date: 20071010
  Serious: Yes (Other)
  Sender: FDA-Public Use
  Company Number: 2007SP010347

PATIENT
  Age: 61 Year
  Sex: Female
  Weight: 55.7924 kg

DRUGS (4)
  1. MIRALAX [Suspect]
     Indication: CONSTIPATION
     Dosage: DF; QD; PO
     Route: 048
     Dates: start: 20070409, end: 20070422
  2. MIRALAX [Suspect]
  3. NEXIUM [Concomitant]
  4. CITRUCEL [Concomitant]

REACTIONS (7)
  - ABDOMINAL PAIN [None]
  - FAECES DISCOLOURED [None]
  - HAEMATOCHEZIA [None]
  - HAEMORRHAGE [None]
  - INFLAMMATION [None]
  - PURULENCE [None]
  - RECTAL PROLAPSE [None]
